FAERS Safety Report 6493963-4 (Version None)
Quarter: 2009Q4

REPORT INFORMATION
  Report Type: 
  Country: None (occurrence: None)
  Receive Date: 20091214
  Receipt Date: 20090121
  Transmission Date: 20100525
  Serious: No
  Sender: FDA-Public Use
  Company Number: US-BRISTOL-MYERS SQUIBB COMPANY-14427231

PATIENT
  Age: 89 Year
  Sex: Female
  Weight: 82 kg

DRUGS (5)
  1. ABILIFY [Suspect]
     Indication: DEPRESSION
     Dates: start: 20080601
  2. ARICEPT [Concomitant]
  3. DIGITEK [Concomitant]
  4. COUMADIN [Concomitant]
  5. TORSEMIDE [Concomitant]

REACTIONS (2)
  - HALLUCINATION, AUDITORY [None]
  - SOMNOLENCE [None]
